FAERS Safety Report 11269483 (Version 1)
Quarter: 2015Q3

REPORT INFORMATION
  Report Type: Spontaneous
  Country: GB (occurrence: GB)
  Receive Date: 20150714
  Receipt Date: 20150714
  Transmission Date: 20151125
  Serious: Yes (Other)
  Sender: FDA-Public Use
  Company Number: GB-TEVA-576826ACC

PATIENT
  Age: 27 Year
  Sex: Female

DRUGS (11)
  1. HYOSCINE BUTYLBROMIDE [Concomitant]
     Active Substance: BUTYLSCOPOLAMINE
  2. SALBUTAMOL [Concomitant]
     Active Substance: ALBUTEROL
  3. AMITRIPTYLINE [Concomitant]
     Active Substance: AMITRIPTYLINE
  4. DOCUSATE [Concomitant]
     Active Substance: DOCUSATE
  5. MORPHINE SULFATE. [Concomitant]
     Active Substance: MORPHINE SULFATE
  6. OMEPRAZOLE. [Concomitant]
     Active Substance: OMEPRAZOLE
  7. TINZAPARIN [Concomitant]
     Active Substance: TINZAPARIN
  8. PARACETAMOL [Concomitant]
     Active Substance: ACETAMINOPHEN
  9. TIOTROPIUM [Concomitant]
     Active Substance: TIOTROPIUM
  10. HALOPERIDOL. [Suspect]
     Active Substance: HALOPERIDOL
     Indication: PRODUCT USED FOR UNKNOWN INDICATION
     Dosage: 1 MG
     Route: 030
     Dates: start: 20150626, end: 20150626
  11. NEFOPAM [Concomitant]
     Active Substance: NEFOPAM

REACTIONS (4)
  - Dystonia [Recovered/Resolved]
  - Agitation [Recovered/Resolved]
  - Trismus [Recovered/Resolved]
  - Muscle tightness [Recovered/Resolved]

NARRATIVE: CASE EVENT DATE: 20150626
